FAERS Safety Report 15466406 (Version 3)
Quarter: 2018Q4

REPORT INFORMATION
  Report Type: Spontaneous
  Country: NL (occurrence: NL)
  Receive Date: 20181004
  Receipt Date: 20181123
  Transmission Date: 20190204
  Serious: Yes (Other)
  Sender: FDA-Public Use
  Company Number: NL-BIOGEN-2018BI00640604

PATIENT
  Age: 27 Year
  Sex: Female

DRUGS (1)
  1. TYSABRI [Suspect]
     Active Substance: NATALIZUMAB
     Indication: MULTIPLE SCLEROSIS
     Dosage: INFUSED OVER 1 HOUR
     Route: 042
     Dates: start: 20171227

REACTIONS (8)
  - Drug effect decreased [Unknown]
  - Central nervous system lesion [Not Recovered/Not Resolved]
  - Haematuria [Unknown]
  - Weight decreased [Unknown]
  - Eye pain [Unknown]
  - Multiple sclerosis [Unknown]
  - Deep vein thrombosis [Not Recovered/Not Resolved]
  - Gastrointestinal disorder [Unknown]

NARRATIVE: CASE EVENT DATE: 20180620
